FAERS Safety Report 15181344 (Version 3)
Quarter: 2019Q4

REPORT INFORMATION
  Report Type: Spontaneous
  Country: US (occurrence: US)
  Receive Date: 20180723
  Receipt Date: 20191115
  Transmission Date: 20200122
  Serious: Yes (Other)
  Sender: FDA-Public Use
  Company Number: US-SA-2018SA199518

PATIENT
  Age: 64 Year
  Sex: Female
  Weight: 108 kg

DRUGS (13)
  1. PHENERGAN [Concomitant]
     Active Substance: PROMETHAZINE HYDROCHLORIDE
  2. ZOFRAN [Concomitant]
     Active Substance: ONDANSETRON HYDROCHLORIDE
     Dosage: 16 G
     Dates: start: 20110408, end: 20110408
  3. DEXAMETHASONE. [Concomitant]
     Active Substance: DEXAMETHASONE
  4. HYDROCHLOROTHIAZIDE. [Concomitant]
     Active Substance: HYDROCHLOROTHIAZIDE
  5. NYSTATIN. [Concomitant]
     Active Substance: NYSTATIN
  6. DECADRON [Concomitant]
     Active Substance: DEXAMETHASONE
     Dosage: 1 G
     Dates: start: 20110430, end: 20110430
  7. VALIUM [Concomitant]
     Active Substance: DIAZEPAM
  8. TAXOTERE [Suspect]
     Active Substance: DOCETAXEL
     Dosage: 75 MG, Q3W
     Route: 042
     Dates: start: 20110430, end: 20110430
  9. DECADRON [Concomitant]
     Active Substance: DEXAMETHASONE
     Dosage: 1 G
     Dates: start: 20110408, end: 20110408
  10. TAXOTERE [Suspect]
     Active Substance: DOCETAXEL
     Indication: BREAST CANCER FEMALE
     Dosage: 75 MG, Q3W
     Route: 042
     Dates: start: 20110408, end: 20110408
  11. FOSINOPRIL SODIUM. [Concomitant]
     Active Substance: FOSINOPRIL SODIUM
  12. ESOMEPRAZOLE MAGNESIUM. [Concomitant]
     Active Substance: ESOMEPRAZOLE MAGNESIUM
  13. ZOFRAN [Concomitant]
     Active Substance: ONDANSETRON HYDROCHLORIDE
     Dosage: 16 G
     Dates: start: 20110430, end: 20110430

REACTIONS (1)
  - Alopecia [Not Recovered/Not Resolved]

NARRATIVE: CASE EVENT DATE: 20110601
